FAERS Safety Report 9913529 (Version 1)
Quarter: 2014Q1

REPORT INFORMATION
  Report Type: Spontaneous
  Country: US (occurrence: None)
  Receive Date: 20140219
  Receipt Date: 20140219
  Transmission Date: 20141002
  Serious: No
  Sender: FDA-Public Use
  Company Number: None

PATIENT
  Age: 73 Year
  Sex: Male
  Weight: 69.82 kg

DRUGS (1)
  1. GEMCITABINE HYDROCHLORIDE [Suspect]
     Dates: start: 20131204, end: 20140205

REACTIONS (6)
  - Asthenia [None]
  - Diarrhoea [None]
  - Urine output increased [None]
  - Syncope [None]
  - Haemoglobin decreased [None]
  - Occult blood positive [None]
